FAERS Safety Report 9562112 (Version 1)
Quarter: 2013Q3

REPORT INFORMATION
  Report Type: Spontaneous
  Country: IT (occurrence: IT)
  Receive Date: 20130927
  Receipt Date: 20130927
  Transmission Date: 20140515
  Serious: Yes (Other)
  Sender: FDA-Public Use
  Company Number: IT-ROXANE LABORATORIES, INC.-2013-RO-01572RO

PATIENT
  Age: 79 Year
  Sex: Male

DRUGS (2)
  1. DEXAMETHASONE [Suspect]
     Indication: PALLIATIVE CARE
  2. PHENOBARBITAL [Suspect]
     Indication: PALLIATIVE CARE

REACTIONS (2)
  - Dysphagia [Unknown]
  - Hiccups [Recovered/Resolved]
